FAERS Safety Report 12808303 (Version 2)
Quarter: 2016Q4

REPORT INFORMATION
  Report Type: Spontaneous
  Country: KR (occurrence: KR)
  Receive Date: 20161004
  Receipt Date: 20161019
  Transmission Date: 20170207
  Serious: Yes (Life-Threatening)
  Sender: FDA-Public Use
  Company Number: KR-HQ SPECIALTY-KR-2016INT000910

PATIENT
  Age: 59 Year
  Sex: Female

DRUGS (4)
  1. CISPLATIN. [Suspect]
     Active Substance: CISPLATIN
     Indication: CERVIX CARCINOMA
     Dosage: IVF, 50 MG/BSA(M2) [2 CYCLES]
  2. DEXTROSE 5% [Concomitant]
     Active Substance: DEXTROSE
     Dosage: 120 ML/H: (475 ML) 1:1 CRUDE SOLUTION
  3. DEXTROSE 5% [Concomitant]
     Active Substance: DEXTROSE
     Indication: PRODUCT USED FOR UNKNOWN INDICATION
     Dosage: 60 ML/H: (15 ML) 1:1 CRUDE SOLUTION
  4. CISPLATIN. [Suspect]
     Active Substance: CISPLATIN
     Dosage: [1 MG/ML] 0.03 ML, UNK

REACTIONS (5)
  - Dizziness [Unknown]
  - Anaphylactic shock [Unknown]
  - Urticaria [Unknown]
  - Chest discomfort [Unknown]
  - Nausea [Unknown]
